FAERS Safety Report 12143349 (Version 1)
Quarter: 2016Q1

REPORT INFORMATION
  Report Type: Report from Study
  Country: US (occurrence: US)
  Receive Date: 20160304
  Receipt Date: 20160304
  Transmission Date: 20160526
  Serious: Yes (Other)
  Sender: FDA-Public Use
  Company Number: US-ROCHE-1720359

PATIENT
  Sex: Male

DRUGS (19)
  1. PROAIR HFA [Concomitant]
     Active Substance: ALBUTEROL SULFATE
     Dosage: TAKE 2 INHALATIONS EVERY 4 TO 6 HOURS AS REQUIRED
     Route: 045
  2. AUGMENTIN [Concomitant]
     Active Substance: AMOXICILLIN\CLAVULANATE POTASSIUM
     Route: 048
  3. SOLU-CORTEF [Concomitant]
     Active Substance: HYDROCORTISONE SODIUM SUCCINATE
     Dosage: PRIOR TO HAMSTRING SURGERY
     Route: 030
     Dates: start: 20150722
  4. SYNTHROID [Concomitant]
     Active Substance: LEVOTHYROXINE SODIUM
     Dosage: 1 TAB
     Route: 048
  5. NUTROPIN AQ [Suspect]
     Active Substance: SOMATROPIN
     Indication: HYPOPITUITARISM
     Route: 058
  6. MOTRIN [Concomitant]
     Active Substance: IBUPROFEN
     Dosage: 100 MG IN 5 ML
     Route: 048
  7. PROTONIX [Concomitant]
     Active Substance: PANTOPRAZOLE SODIUM
     Dosage: ENTERIC COATED TABLET, ONCE TIME DAILY IN THE MORNING
     Route: 048
  8. CIPRODEX (UNITED STATES) [Concomitant]
     Dosage: 5 DROPS
     Route: 065
  9. BENADRYL [Concomitant]
     Active Substance: DIPHENHYDRAMINE HYDROCHLORIDE
     Dosage: AT BEDTIME
     Route: 048
  10. FLONASE (UNITED STATES) [Concomitant]
     Indication: UPPER RESPIRATORY TRACT INFECTION
     Dosage: 2 SPRAYS EACH NOSTRI DAILY
     Route: 045
  11. SOLU-CORTEF [Concomitant]
     Active Substance: HYDROCORTISONE SODIUM SUCCINATE
     Dosage: AS NEEDED
     Route: 030
  12. CONCERTA [Concomitant]
     Active Substance: METHYLPHENIDATE HYDROCHLORIDE
     Dosage: EXTENDED RELEASE TABLET, ONE TIME DAILY IN THE MORNING
     Route: 048
  13. DEPO TESTOSTERONE [Concomitant]
     Active Substance: TESTOSTERONE
     Dosage: 200 MG/ML
     Route: 030
  14. TYLENOL [Concomitant]
     Active Substance: ACETAMINOPHEN
     Dosage: 650 MG IN 20.3 ML
     Route: 048
  15. COLACE [Concomitant]
     Active Substance: DOCUSATE SODIUM
     Indication: CONSTIPATION
     Route: 048
  16. FLOVENT HFA [Concomitant]
     Active Substance: FLUTICASONE PROPIONATE
     Indication: UPPER RESPIRATORY TRACT INFECTION
     Dosage: 2 INHALATIONS TWICE DAILY
     Route: 045
  17. CORTEF [Concomitant]
     Active Substance: HYDROCORTISONE
     Dosage: 20 MG EVERY 8 HOURS AS NEEDED
     Route: 048
  18. ZYRTEC [Concomitant]
     Active Substance: CETIRIZINE HYDROCHLORIDE
     Indication: SEASONAL ALLERGY
     Route: 065
  19. MIRALAX [Concomitant]
     Active Substance: POLYETHYLENE GLYCOL 3350
     Route: 048

REACTIONS (2)
  - Diarrhoea [Unknown]
  - Ear infection [Unknown]
